FAERS Safety Report 14315119 (Version 1)
Quarter: 2017Q4

REPORT INFORMATION
  Report Type: Spontaneous
  Country: US (occurrence: US)
  Receive Date: 20171221
  Receipt Date: 20171221
  Transmission Date: 20180321
  Serious: Yes (Other)
  Sender: FDA-Public Use
  Company Number: US-JUBILANT HOLLISTERSTIER LLC-2037591

PATIENT
  Age: 47 Year
  Sex: Female

DRUGS (3)
  1. HONEY BEE HYMENOPTERA VENOM MULTIDOSE [Suspect]
     Active Substance: APIS MELLIFERA VENOM
     Indication: ALLERGY TEST
     Route: 023
  2. THREE SPECIES WASP [Suspect]
     Active Substance: ALLERGENIC EXTRACT- WASP
  3. MIXED VESPID HYMENOPTERA VENOM MULTIDOSE [Suspect]
     Active Substance: DOLICHOVESPULA ARENARIA VENOM PROTEIN\DOLICHOVESPULA MACULATA VENOM PROTEIN\VESPULA GERMANICA VENOM PROTEIN\VESPULA MACULIFRONS VENOM PROTEIN\VESPULA PENSYLVANICA VENOM PROTEIN\VESPULA SQUAMOSA VENOM PROTEIN\VESPULA VULGARIS VENOM PROTEIN

REACTIONS (6)
  - Hyperhidrosis [Recovered/Resolved]
  - Pruritus generalised [Recovered/Resolved]
  - Pruritus [None]
  - Urticaria [Recovered/Resolved]
  - Hot flush [Recovered/Resolved]
  - Abdominal pain [Recovered/Resolved]

NARRATIVE: CASE EVENT DATE: 20171121
